FAERS Safety Report 8973074 (Version 2)
Quarter: 2013Q4

REPORT INFORMATION
  Report Type: Spontaneous
  Country: US (occurrence: US)
  Receive Date: 20121218
  Receipt Date: 20131118
  Transmission Date: 20140711
  Serious: Yes (Other)
  Sender: FDA-Public Use
  Company Number: US-ROCHE-1143652

PATIENT
  Age: 14 Year
  Sex: Male
  Weight: 88.98 kg

DRUGS (1)
  1. ACCUTANE [Suspect]
     Indication: ACNE
     Dosage: DOSE 60-80 MG
     Route: 065
     Dates: start: 20070602, end: 20070913

REACTIONS (5)
  - Crohn^s disease [Unknown]
  - Inflammatory bowel disease [Unknown]
  - Obsessive-compulsive disorder [Unknown]
  - Suicidal ideation [Unknown]
  - Lip dry [Unknown]
